FAERS Safety Report 14288477 (Version 2)
Quarter: 2019Q4

REPORT INFORMATION
  Report Type: Spontaneous
  Country: DE (occurrence: DE)
  Receive Date: 20171215
  Receipt Date: 20191129
  Transmission Date: 20200122
  Serious: No
  Sender: FDA-Public Use
  Company Number: DE-ASTRAZENECA-2017SF18146

PATIENT
  Age: 50 Year
  Sex: Female

DRUGS (1)
  1. OMEPRAZOLE. [Suspect]
     Active Substance: OMEPRAZOLE
     Route: 048
     Dates: start: 2008

REACTIONS (3)
  - Dyspnoea [Unknown]
  - Skin test [Unknown]
  - Urticaria [Unknown]

NARRATIVE: CASE EVENT DATE: 2008
